FAERS Safety Report 11434600 (Version 1)
Quarter: 2015Q3

REPORT INFORMATION
  Report Type: Report from Study
  Country: IE (occurrence: IE)
  Receive Date: 20150831
  Receipt Date: 20150831
  Transmission Date: 20151125
  Serious: Yes (Hospitalization)
  Sender: FDA-Public Use
  Company Number: IE-LEO PHARMA-232409

PATIENT
  Age: 82 Year
  Sex: Male

DRUGS (1)
  1. PICATO [Suspect]
     Active Substance: INGENOL MEBUTATE
     Indication: ACTINIC KERATOSIS
     Route: 061
     Dates: start: 20150116, end: 20150118

REACTIONS (5)
  - Application site scab [Recovered/Resolved]
  - Pain [Recovered/Resolved]
  - Eye swelling [Recovered/Resolved]
  - Drug administered at inappropriate site [Unknown]
  - Solar lentigo [Recovered/Resolved]

NARRATIVE: CASE EVENT DATE: 20150121
